FAERS Safety Report 10460923 (Version 1)
Quarter: 2014Q3

REPORT INFORMATION
  Report Type: Spontaneous
  Country: US (occurrence: None)
  Receive Date: 20140917
  Receipt Date: 20140917
  Transmission Date: 20150326
  Serious: Yes (Hospitalization, Disabling)
  Sender: FDA-Public Use
  Company Number: None

PATIENT
  Age: 70 Year
  Sex: Female
  Weight: 62.14 kg

DRUGS (1)
  1. POMALYST [Suspect]
     Active Substance: POMALIDOMIDE
     Indication: PLASMA CELL MYELOMA
     Dosage: 1/DAY FOR 21 DAYS, ONCE DAILY, TAKEN BY MOUTH
     Route: 048
     Dates: start: 20140804, end: 20140826

REACTIONS (4)
  - Memory impairment [None]
  - Disturbance in attention [None]
  - Confusional state [None]
  - Transient ischaemic attack [None]

NARRATIVE: CASE EVENT DATE: 20140825
